FAERS Safety Report 5897795-7 (Version None)
Quarter: 2008Q3

REPORT INFORMATION
  Report Type: 
  Country: None (occurrence: None)
  Receive Date: 20080925
  Receipt Date: 20080922
  Transmission Date: 20090109
  Serious: Yes (Death)
  Sender: FDA-Public Use
  Company Number: MX-ABBOTT-08P-107-0475483-00

PATIENT
  Sex: Male
  Weight: 45 kg

DRUGS (1)
  1. KALETRA [Suspect]
     Indication: HIV INFECTION
     Dates: start: 20060315, end: 20070301

REACTIONS (5)
  - ACQUIRED IMMUNODEFICIENCY SYNDROME [None]
  - CACHEXIA [None]
  - INTERSTITIAL LUNG DISEASE [None]
  - PNEUMOCYSTIS JIROVECI PNEUMONIA [None]
  - PYREXIA [None]
